FAERS Safety Report 25984155 (Version 1)
Quarter: 2025Q4

REPORT INFORMATION
  Report Type: Spontaneous
  Country: US (occurrence: US)
  Receive Date: 20251031
  Receipt Date: 20251031
  Transmission Date: 20260119
  Serious: Yes (Other)
  Sender: HIKMA PHARMACEUTICALS USA INC.
  Company Number: US-HIKMA PHARMACEUTICALS USA INC.-US-H14001-25-11453

PATIENT
  Age: 69 Year
  Sex: Female

DRUGS (2)
  1. ADALIMUMAB [Suspect]
     Active Substance: ADALIMUMAB
     Indication: Immunosuppression
     Dosage: UNKNOWN
     Route: 065
  2. HYDROXYCHLOROQUINE [Suspect]
     Active Substance: HYDROXYCHLOROQUINE
     Indication: Immunosuppression
     Dosage: 200 MILLIGRAM, BID
     Route: 065

REACTIONS (2)
  - Cardiomyopathy [Recovering/Resolving]
  - Microvascular coronary artery disease [Recovering/Resolving]
